FAERS Safety Report 19705607 (Version 1)
Quarter: 2021Q3

REPORT INFORMATION
  Report Type: Spontaneous
  Country: US (occurrence: US)
  Receive Date: 20210817
  Receipt Date: 20210817
  Transmission Date: 20211014
  Serious: No
  Sender: FDA-Public Use
  Company Number: US-TORRENT-00011205

PATIENT
  Sex: Female
  Weight: 79 kg

DRUGS (4)
  1. VENLAFAXINE HYDROCHLORIDE EXTENDED RELEASE CAPSULES [Suspect]
     Active Substance: VENLAFAXINE HYDROCHLORIDE
     Indication: DIARRHOEA
     Dosage: 75 MG, ONCE EVERY MORNING
     Route: 048
     Dates: start: 2021, end: 2021
  2. GABAPENTIN. [Concomitant]
     Active Substance: GABAPENTIN
     Indication: NEURALGIA
     Dosage: 300 MG TWICE A DAY; ONE IN A MORNING AND ANOTHER AT EVENING WITH 12 HRS.
  3. SIMVASTATIN. [Concomitant]
     Active Substance: SIMVASTATIN
     Indication: BLOOD CHOLESTEROL INCREASED
     Dosage: 10 MG ONCE A DAY AT NIGHT
     Route: 048
  4. LISINOPRIL. [Concomitant]
     Active Substance: LISINOPRIL
     Indication: HYPERTENSION
     Dosage: 5MG ONCE IN THE MORNING

REACTIONS (3)
  - Product packaging issue [Unknown]
  - Withdrawal syndrome [Recovered/Resolved]
  - Therapy change [Unknown]
